FAERS Safety Report 4485471-7 (Version None)
Quarter: 2004Q4

REPORT INFORMATION
  Report Type: 
  Country: None (occurrence: None)
  Receive Date: 20041026
  Receipt Date: 20041007
  Transmission Date: 20050328
  Serious: Yes (Hospitalization)
  Sender: FDA-Public Use
  Company Number: 200413143JP

PATIENT
  Age: 0 Year
  Sex: Male
  Weight: 3.6 kg

DRUGS (7)
  1. LASIX [Suspect]
     Indication: HYPERTENSION
     Route: 048
     Dates: start: 20040825, end: 20040911
  2. NEOPHYLLIN [Concomitant]
     Indication: APNOEIC ATTACK
     Route: 048
     Dates: start: 20040821, end: 20040903
  3. 10% NACL [Concomitant]
     Indication: HYPONATRAEMIA
     Route: 048
     Dates: start: 20040828, end: 20040913
  4. ALFAROL [Concomitant]
     Indication: PROPHYLAXIS
     Route: 048
     Dates: start: 20040906
  5. ALFAROL [Concomitant]
     Indication: RICKETS
     Route: 048
     Dates: start: 20040906
  6. SEPAMIT [Concomitant]
     Indication: HYPERTENSION
     Route: 048
     Dates: start: 20040905, end: 20040923
  7. INOVAN [Concomitant]
     Indication: SHOCK
     Route: 042
     Dates: start: 20040817, end: 20040821

REACTIONS (8)
  - CEREBRAL VENTRICLE DILATATION [None]
  - HYPERALDOSTERONISM [None]
  - HYPERTENSION NEONATAL [None]
  - INTRAVENTRICULAR HAEMORRHAGE NEONATAL [None]
  - NEONATAL DISORDER [None]
  - PSEUDO-BARTTER SYNDROME [None]
  - RENIN INCREASED [None]
  - STAPHYLOCOCCAL INFECTION [None]
